FAERS Safety Report 7485131-4 (Version None)
Quarter: 2011Q2

REPORT INFORMATION
  Report Type: 
  Country: None (occurrence: None)
  Receive Date: 20110517
  Receipt Date: 20110511
  Transmission Date: 20111010
  Serious: Yes (Death, Hospitalization)
  Sender: FDA-Public Use
  Company Number: AT-ROCHE-776902

PATIENT
  Sex: Female

DRUGS (2)
  1. PACLITAXEL [Suspect]
     Dosage: LAST DOSE PRIOR OT SAE ON 01 OCTOBER 209
     Route: 042
     Dates: start: 20090423, end: 20091029
  2. BEVACIZUMAB [Suspect]
     Dosage: LAST DOSE PRIOR TO SAE ON 01 OCTOBER 2009
     Route: 042
     Dates: start: 20090423, end: 20091029

REACTIONS (2)
  - HEPATIC ENZYME INCREASED [None]
  - GENERAL PHYSICAL HEALTH DETERIORATION [None]
